FAERS Safety Report 4479938-5 (Version None)
Quarter: 2004Q3

REPORT INFORMATION
  Report Type: 
  Country: None (occurrence: None)
  Receive Date: 20040923
  Receipt Date: 20040521
  Transmission Date: 20050211
  Serious: No
  Sender: FDA-Public Use
  Company Number: USA040568249

PATIENT
  Age: 78 Year
  Sex: Female

DRUGS (1)
  1. FORTEO [Suspect]
     Dates: start: 20040301, end: 20040501

REACTIONS (6)
  - DYSPEPSIA [None]
  - HEADACHE [None]
  - INSOMNIA [None]
  - NERVOUSNESS [None]
  - PALPITATIONS [None]
  - TINNITUS [None]
